FAERS Safety Report 13642933 (Version 1)
Quarter: 2017Q2

REPORT INFORMATION
  Report Type: Spontaneous
  Country: US (occurrence: US)
  Receive Date: 20170612
  Receipt Date: 20170612
  Transmission Date: 20170830
  Serious: No
  Sender: FDA-Public Use
  Company Number: US-SEPTODONT-201603584

PATIENT
  Age: 16 Year
  Sex: Female

DRUGS (2)
  1. ULTRACARE TOPICAL ANESTHETIC GEL [Concomitant]
     Indication: LOCAL ANAESTHESIA
     Route: 061
     Dates: start: 20160809, end: 20160809
  2. SEPTOCAINE AND EPINEPHRINE [Suspect]
     Active Substance: ARTICAINE HYDROCHLORIDE\EPINEPHRINE BITARTRATE
     Indication: LOCAL ANAESTHESIA
     Dosage: INFERIOR ALVEOLAR HEALTHY TISSUE INJECTION USING NERVE BLOCK TECHNIQUE AND MONOJECT 27G LONG NEEDLE
     Route: 004
     Dates: start: 20160809, end: 20160809

REACTIONS (1)
  - Drug ineffective [Recovered/Resolved]

NARRATIVE: CASE EVENT DATE: 20160809
